FAERS Safety Report 15616084 (Version 1)
Quarter: 2018Q4

REPORT INFORMATION
  Report Type: Spontaneous
  Country: US (occurrence: US)
  Receive Date: 20181114
  Receipt Date: 20181114
  Transmission Date: 20190205
  Serious: Yes (Hospitalization)
  Sender: FDA-Public Use
  Company Number: US-TEVA-2018-US-974285

PATIENT
  Age: 21 Year
  Sex: Male

DRUGS (1)
  1. HYDRALAZINE [Suspect]
     Active Substance: HYDRALAZINE HYDROCHLORIDE
     Indication: RENOVASCULAR HYPERTENSION
     Route: 065

REACTIONS (3)
  - Pericardial effusion [Recovered/Resolved]
  - Lupus-like syndrome [Recovered/Resolved]
  - Pericarditis [Recovered/Resolved]
